FAERS Safety Report 7707632-3 (Version None)
Quarter: 2011Q3

REPORT INFORMATION
  Report Type: 
  Country: None (occurrence: None)
  Receive Date: 20110824
  Receipt Date: 20110816
  Transmission Date: 20111222
  Serious: Yes (Disabling, Other)
  Sender: FDA-Public Use
  Company Number: US-ELI_LILLY_AND_COMPANY-US201108004937

PATIENT
  Age: 52 Year
  Sex: Female

DRUGS (2)
  1. HUMALOG [Suspect]
     Indication: DIABETES MELLITUS
     Dosage: UNK UNK, OTHER
     Route: 058
  2. HUMALOG [Suspect]
     Dosage: UNK UNK, OTHER
     Route: 058

REACTIONS (5)
  - VISUAL IMPAIRMENT [None]
  - DIABETIC RETINOPATHY [None]
  - EXPIRED DRUG ADMINISTERED [None]
  - MALAISE [None]
  - BLINDNESS UNILATERAL [None]
